FAERS Safety Report 7584645-6 (Version None)
Quarter: 2011Q2

REPORT INFORMATION
  Report Type: 
  Country: None (occurrence: None)
  Receive Date: 20110630
  Receipt Date: 20110620
  Transmission Date: 20111010
  Serious: Yes (Other)
  Sender: FDA-Public Use
  Company Number: FR-ROCHE-784979

PATIENT
  Sex: Male

DRUGS (2)
  1. ACCUTANE [Suspect]
     Indication: ACNE
     Dosage: ONCE
     Route: 048
     Dates: start: 19940901, end: 19950901
  2. ACCUTANE [Suspect]
     Dosage: FREQ: ONCE, STENGTH: 10MG, CAPSULE
     Route: 048
     Dates: start: 19960901, end: 19970901

REACTIONS (2)
  - SUICIDE ATTEMPT [None]
  - DEPRESSION [None]
